FAERS Safety Report 7688150-8 (Version None)
Quarter: 2011Q3

REPORT INFORMATION
  Report Type: 
  Country: None (occurrence: None)
  Receive Date: 20110817
  Receipt Date: 20110811
  Transmission Date: 20111222
  Serious: Yes (Hospitalization, Other)
  Sender: FDA-Public Use
  Company Number: US-ABBOTT-11P-163-0845564-00

PATIENT
  Sex: Female
  Weight: 63.56 kg

DRUGS (1)
  1. HUMIRA [Suspect]
     Indication: CROHN'S DISEASE
     Dates: start: 20101101, end: 20101201

REACTIONS (7)
  - HYPOPHAGIA [None]
  - INTESTINAL STENOSIS [None]
  - DRUG INEFFECTIVE [None]
  - PERINEAL ABSCESS [None]
  - VAGINAL ABSCESS [None]
  - ANAEMIA [None]
  - DIARRHOEA [None]
